FAERS Safety Report 4822145-4 (Version None)
Quarter: 2005Q4

REPORT INFORMATION
  Report Type: 
  Country: None (occurrence: None)
  Receive Date: 20051103
  Receipt Date: 20051019
  Transmission Date: 20060501
  Serious: Yes (Death)
  Sender: FDA-Public Use
  Company Number: L05-USA-03935-29

PATIENT
  Age: 83 Year

DRUGS (3)
  1. DILTIAZEM [Suspect]
  2. ACETYLSALICYLIC ACID SRT [Suspect]
  3. PROPOXYPHENE HCL AND ACETAMINOPHEN (ACETAMINOPHEN/PROPOXYPHENE) [Concomitant]

REACTIONS (4)
  - CARDIAC ARREST [None]
  - COMPLETED SUICIDE [None]
  - MULTIPLE DRUG OVERDOSE INTENTIONAL [None]
  - RESPIRATORY ARREST [None]
